FAERS Safety Report 8746779 (Version 4)
Quarter: 2014Q2

REPORT INFORMATION
  Report Type: Spontaneous
  Country: US (occurrence: US)
  Receive Date: 20120827
  Receipt Date: 20140418
  Transmission Date: 20141212
  Serious: Yes (Hospitalization, Disabling, Other)
  Sender: FDA-Public Use
  Company Number: US-009507513-1208USA009504

PATIENT
  Sex: Female
  Weight: 47.62 kg

DRUGS (2)
  1. FOSAMAX [Suspect]
     Indication: OSTEOPOROSIS
     Dosage: 10 MG, UNK
     Route: 048
     Dates: end: 2010
  2. FOSAMAX [Suspect]
     Dosage: 70 MG, QW
     Route: 048
     Dates: end: 2010

REACTIONS (91)
  - Femur fracture [Unknown]
  - Intramedullary rod insertion [Unknown]
  - Pelvic fracture [Unknown]
  - Intramedullary rod insertion [Unknown]
  - Intramedullary rod insertion [Unknown]
  - Acetabulum fracture [Unknown]
  - Femur fracture [Not Recovered/Not Resolved]
  - Femur fracture [Recovered/Resolved]
  - Intramedullary rod insertion [Unknown]
  - Loss of consciousness [Unknown]
  - Rotator cuff repair [Unknown]
  - Fall [Unknown]
  - Haemorrhagic anaemia [Unknown]
  - Pancytopenia [Unknown]
  - Tibia fracture [Unknown]
  - Pancreatitis [Unknown]
  - Tibia fracture [Unknown]
  - Thrombocytopenia [Unknown]
  - Joint injury [Not Recovered/Not Resolved]
  - Fibula fracture [Unknown]
  - Impaired healing [Unknown]
  - Pelvic haematoma [Unknown]
  - Femur fracture [Unknown]
  - Open reduction of fracture [Unknown]
  - Skin graft [Unknown]
  - Medical device removal [Unknown]
  - Debridement [Unknown]
  - Infection [Unknown]
  - Osteomyelitis [Unknown]
  - Gastritis [Unknown]
  - Medical device removal [Unknown]
  - Debridement [Unknown]
  - Hiatus hernia [Unknown]
  - Hypercholesterolaemia [Unknown]
  - Hysterectomy [Unknown]
  - Cerebral atrophy [Unknown]
  - Depression [Unknown]
  - Anxiety [Unknown]
  - Arthroscopy [Unknown]
  - Tachycardia [Unknown]
  - Microcytic anaemia [Unknown]
  - Hypokalaemia [Unknown]
  - Multiple fractures [Unknown]
  - Fatigue [Unknown]
  - Alcohol abuse [Unknown]
  - Pain [Not Recovered/Not Resolved]
  - Myelodysplastic syndrome [Unknown]
  - Hepatitis C [Unknown]
  - Tendonitis [Unknown]
  - Blood bilirubin increased [Unknown]
  - Osteopenia [Unknown]
  - Deep vein thrombosis [Unknown]
  - Anticoagulation drug level below therapeutic [Unknown]
  - Skin ulcer [Unknown]
  - Underdose [Unknown]
  - Coagulopathy [Unknown]
  - Neuropathy peripheral [Unknown]
  - Lipoma [Unknown]
  - Osteoarthritis [Unknown]
  - Chondroplasty [Unknown]
  - Urinary tract infection [Unknown]
  - Bone contusion [Unknown]
  - Bone marrow oedema [Unknown]
  - Ligament sprain [Unknown]
  - Meniscus removal [Unknown]
  - Chondromalacia [Unknown]
  - Arthropathy [Unknown]
  - Device failure [Unknown]
  - Fall [Unknown]
  - Ulna fracture [Unknown]
  - Device failure [Unknown]
  - Joint irrigation [Unknown]
  - Transplant failure [Unknown]
  - Post procedural infection [Unknown]
  - Chest pain [Unknown]
  - Cholelithiasis [Unknown]
  - Electrocardiogram change [Unknown]
  - Hepatic lesion [Unknown]
  - Haemangioma of liver [Unknown]
  - Blood alkaline phosphatase increased [Unknown]
  - Hypertension [Unknown]
  - Osteoarthritis [Unknown]
  - Diabetes mellitus [Unknown]
  - Drug dependence [Unknown]
  - Depression [Unknown]
  - Rotator cuff syndrome [Unknown]
  - Adenotonsillectomy [Unknown]
  - Gastrooesophageal reflux disease [Unknown]
  - Musculoskeletal pain [Not Recovered/Not Resolved]
  - Asthenia [Unknown]
  - Nausea [Not Recovered/Not Resolved]
